FAERS Safety Report 17825236 (Version 1)
Quarter: 2020Q2

REPORT INFORMATION
  Report Type: Spontaneous
  Country: US (occurrence: US)
  Receive Date: 20200526
  Receipt Date: 20200526
  Transmission Date: 20200714
  Serious: Yes (Death, Other)
  Sender: FDA-Public Use
  Company Number: US-SA-2020SA134107

PATIENT
  Sex: Male

DRUGS (1)
  1. ZANTAC 75 [Suspect]
     Active Substance: RANITIDINE HYDROCHLORIDE
     Dosage: 150 MG; ONCE OR TWICE DAILY
     Dates: start: 20000101, end: 2018

REACTIONS (6)
  - Anxiety [Fatal]
  - Emotional distress [Fatal]
  - Impaired quality of life [Fatal]
  - Injury [Fatal]
  - Metastatic carcinoma of the bladder [Fatal]
  - Pain [Fatal]

NARRATIVE: CASE EVENT DATE: 201704
